FAERS Safety Report 24724921 (Version 2)
Quarter: 2024Q4

REPORT INFORMATION
  Report Type: Report from Study
  Country: US (occurrence: US)
  Receive Date: 20241212
  Receipt Date: 20241217
  Transmission Date: 20250115
  Serious: Yes (Death)
  Sender: ROCHE
  Company Number: US-ROCHE-10000154746

PATIENT
  Age: 68 Year
  Sex: Male

DRUGS (4)
  1. COTELLIC [Suspect]
     Active Substance: COBIMETINIB
     Indication: Langerhans^ cell histiocytosis
     Dosage: TAKE 60MG (3X20MG TABS) BY MOUTH DAILY FOR 21 DAYS ON, THEN 7 DAYS OFF.
     Route: 048
  2. INSULIN B [Concomitant]
  3. LEVOTHYROXINE [Concomitant]
     Active Substance: LEVOTHYROXINE
  4. OMEPRAZOLE [Concomitant]
     Active Substance: OMEPRAZOLE

REACTIONS (1)
  - Death [Fatal]
